FAERS Safety Report 21017101 (Version 3)
Quarter: 2022Q4

REPORT INFORMATION
  Report Type: Spontaneous
  Country: CA (occurrence: None)
  Receive Date: 20220628
  Receipt Date: 20221122
  Transmission Date: 20230112
  Serious: Yes (Hospitalization)
  Sender: FDA-Public Use
  Company Number: 2022A227130

PATIENT
  Age: 69 Year
  Sex: Female
  Weight: 72 kg

DRUGS (7)
  1. ROSUVASTATIN CALCIUM [Suspect]
     Active Substance: ROSUVASTATIN CALCIUM
     Indication: Hyperlipidaemia
     Route: 048
     Dates: end: 20211113
  2. NITROFURANTOIN [Suspect]
     Active Substance: NITROFURANTOIN
     Indication: Cystitis
     Route: 048
     Dates: start: 20211103, end: 20211107
  3. FLOVENT [Concomitant]
     Active Substance: FLUTICASONE PROPIONATE
     Dosage: 125 MCG/DOSE 2 VAPORIZATIONS IF NEEDED
  4. NEURONTIN [Concomitant]
     Active Substance: GABAPENTIN
     Route: 065
  5. SYNTHROID [Concomitant]
     Active Substance: LEVOTHYROXINE SODIUM
     Dosage: 75 MCG ONCE PER DAY
  6. VENTOLIN [Concomitant]
     Active Substance: ALBUTEROL SULFATE
     Dosage: 100 MCG/DOSE 2 VAPORIZATION IF NEEDED
  7. MACROBIO [Concomitant]

REACTIONS (5)
  - Electrolyte imbalance [Recovered/Resolved]
  - Pancreatitis necrotising [Recovered/Resolved]
  - Pulmonary oedema [Recovered/Resolved]
  - Hepatic enzyme increased [Recovered/Resolved]
  - Pancreatogenous diabetes [Recovered/Resolved]

NARRATIVE: CASE EVENT DATE: 20211110
